FAERS Safety Report 9922380 (Version 1)
Quarter: 2014Q1

REPORT INFORMATION
  Report Type: Report from Study
  Country: US (occurrence: DE)
  Receive Date: 20140225
  Receipt Date: 20140225
  Transmission Date: 20141002
  Serious: Yes (Death, Hospitalization)
  Sender: FDA-Public Use
  Company Number: DE-FRI-1000054360

PATIENT
  Age: 42 Year
  Sex: Female
  Weight: 92 kg

DRUGS (6)
  1. ASENAPINE [Suspect]
     Indication: BIPOLAR I DISORDER
     Dosage: 10 MG
     Route: 065
     Dates: start: 20120312, end: 20120806
  2. CIATYL Z ACUPHASE [Concomitant]
     Dates: start: 20120105, end: 20120110
  3. ORFIRIL [Concomitant]
     Dates: start: 20120105
  4. SEROQUEL [Concomitant]
     Dates: start: 20120105, end: 20120209
  5. LITHIUM [Concomitant]
  6. ZYPREXA [Concomitant]

REACTIONS (6)
  - Completed suicide [Fatal]
  - Suicidal ideation [Not Recovered/Not Resolved]
  - Restlessness [Not Recovered/Not Resolved]
  - Tremor [Not Recovered/Not Resolved]
  - Anxiety [Not Recovered/Not Resolved]
  - Drug ineffective [Recovered/Resolved]
